FAERS Safety Report 7692679-6 (Version None)
Quarter: 2011Q3

REPORT INFORMATION
  Report Type: 
  Country: None (occurrence: None)
  Receive Date: 20110819
  Receipt Date: 20110816
  Transmission Date: 20111222
  Serious: No
  Sender: FDA-Public Use
  Company Number: US-PFIZER INC-2011188688

PATIENT
  Sex: Female
  Weight: 52.154 kg

DRUGS (2)
  1. VITAMIN TAB [Concomitant]
  2. PREMPRO [Suspect]
     Indication: HORMONE THERAPY
     Dosage: 0.625/2.5 MG, 1X/DAY
     Route: 048
     Dates: end: 20110101

REACTIONS (5)
  - EMOTIONAL DISORDER [None]
  - SKIN WRINKLING [None]
  - ASTHENIA [None]
  - DRY SKIN [None]
  - DECREASED INTEREST [None]
